FAERS Safety Report 5118078-9 (Version None)
Quarter: 2006Q4

REPORT INFORMATION
  Report Type: 
  Country: None (occurrence: None)
  Receive Date: 20061001
  Receipt Date: 20060906
  Transmission Date: 20070319
  Serious: Yes (Other)
  Sender: FDA-Public Use
  Company Number: JP-ABBOTT-06P-087-0343218-00

PATIENT
  Age: 41 Year
  Sex: Male
  Weight: 66 kg

DRUGS (5)
  1. SEVOFLURANE [Suspect]
     Indication: ANAESTHESIA
  2. SEVOFLURANE [Suspect]
  3. FENTANYL [Concomitant]
     Indication: DRUG USE FOR UNKNOWN INDICATION
  4. FENTANYL [Concomitant]
  5. VERCURONIUM [Concomitant]

REACTIONS (1)
  - UNWANTED AWARENESS DURING ANAESTHESIA [None]
